FAERS Safety Report 5140810-9 (Version None)
Quarter: 2006Q4

REPORT INFORMATION
  Report Type: 
  Country: None (occurrence: None)
  Receive Date: 20061026
  Receipt Date: 20061013
  Transmission Date: 20070319
  Serious: Yes (Other)
  Sender: FDA-Public Use
  Company Number: 2006127257

PATIENT
  Age: 65 Year
  Sex: Female

DRUGS (2)
  1. XALATAN [Suspect]
     Indication: GLAUCOMA
     Dosage: ONE DROP (DAILY)
  2. ISOPTO-PILOKARPIN (PILOCARPINE HYDROCHLORIDE) [Concomitant]

REACTIONS (4)
  - CHEILITIS [None]
  - LIP SWELLING [None]
  - RHINITIS [None]
  - STAPHYLOCOCCAL INFECTION [None]
